FAERS Safety Report 17556430 (Version 2)
Quarter: 2020Q1

REPORT INFORMATION
  Report Type: Spontaneous
  Country: US (occurrence: US)
  Receive Date: 20200318
  Receipt Date: 20200324
  Transmission Date: 20200409
  Serious: No
  Sender: FDA-Public Use
  Company Number: US-SA-2020SA067312

PATIENT
  Age: 64 Year
  Sex: Female

DRUGS (1)
  1. DUPIXENT [Suspect]
     Active Substance: DUPILUMAB
     Indication: DERMATITIS
     Dosage: 300 MG,OTHER
     Route: 058
     Dates: start: 2019

REACTIONS (4)
  - Rash [Unknown]
  - Dermatitis [Unknown]
  - Intentional dose omission [Unknown]
  - Drug ineffective [Unknown]
